FAERS Safety Report 15208195 (Version 1)
Quarter: 2018Q3

REPORT INFORMATION
  Report Type: Spontaneous
  Country: US (occurrence: US)
  Receive Date: 20180628
  Receipt Date: 20180628
  Transmission Date: 20181010
  Serious: Yes (Hospitalization, Other)
  Sender: FDA-Public Use
  Company Number: None

PATIENT
  Age: 34 Year
  Sex: Female

DRUGS (1)
  1. BUPROPION HCL [Suspect]
     Active Substance: BUPROPION HYDROCHLORIDE
     Indication: DEPRESSION
     Route: 048
     Dates: start: 201210

REACTIONS (5)
  - Nausea [None]
  - Seizure like phenomena [None]
  - Disorientation [None]
  - Paraesthesia [None]
  - Memory impairment [None]

NARRATIVE: CASE EVENT DATE: 20130210
